FAERS Safety Report 4659053-8 (Version None)
Quarter: 2005Q2

REPORT INFORMATION
  Report Type: 
  Country: None (occurrence: None)
  Receive Date: 20050502
  Receipt Date: 20050309
  Transmission Date: 20051028
  Serious: Yes (Other)
  Sender: FDA-Public Use
  Company Number: 200511758US

PATIENT
  Age: 36 Year
  Sex: Female

DRUGS (1)
  1. KETEK [Suspect]
     Dosage: 800 MG ONCE PO
     Route: 048
     Dates: start: 20050202, end: 20050202

REACTIONS (4)
  - ANAPHYLACTIC REACTION [None]
  - DYSPNOEA [None]
  - OESOPHAGITIS [None]
  - RESPIRATORY DISORDER [None]
